FAERS Safety Report 6175388-4 (Version None)
Quarter: 2009Q2

REPORT INFORMATION
  Report Type: 
  Country: None (occurrence: None)
  Receive Date: 20090430
  Receipt Date: 20080707
  Transmission Date: 20091009
  Serious: No
  Sender: FDA-Public Use
  Company Number: US-ASTRAZENECA-2008UW13684

PATIENT

DRUGS (1)
  1. NEXIUM IV [Suspect]
     Route: 042

REACTIONS (1)
  - INFUSION SITE EXTRAVASATION [None]
